FAERS Safety Report 15423466 (Version 1)
Quarter: 2018Q4

REPORT INFORMATION
  Report Type: Spontaneous
  Country: US (occurrence: US)
  Receive Date: 20180925
  Receipt Date: 20180925
  Transmission Date: 20190204
  Serious: No
  Sender: FDA-Public Use
  Company Number: US-ACCORD-064403

PATIENT
  Age: 45 Year
  Sex: Female
  Weight: 67.13 kg

DRUGS (2)
  1. WELLBUTRIN [Suspect]
     Active Substance: BUPROPION HYDROCHLORIDE
     Indication: FOOD CRAVING
  2. NALTREXONE ACCORD [Suspect]
     Active Substance: NALTREXONE HYDROCHLORIDE
     Indication: FOOD CRAVING
     Dosage: STARTED ABOUT 8 MONTHS AGO
     Route: 048

REACTIONS (3)
  - Gastrooesophageal reflux disease [Recovered/Resolved]
  - Influenza [Unknown]
  - Product substitution issue [Unknown]
